FAERS Safety Report 7980456 (Version 2)
Quarter: 2013Q2

REPORT INFORMATION
  Report Type: Report from Study
  Country: GR (occurrence: GR)
  Receive Date: 20110608
  Receipt Date: 20130404
  Transmission Date: 20140414
  Serious: Yes (Death, Hospitalization)
  Sender: FDA-Public Use
  Company Number: PHHY2011GR47914

PATIENT
  Age: 48 Year
  Sex: Male
  Weight: 55 kg

DRUGS (5)
  1. ZOLEDRONATE [Suspect]
     Dosage: 4 MG, UNK
     Route: 042
     Dates: start: 20100301, end: 20110407
  2. TEMODAL ^ESSEX^ [Concomitant]
     Indication: METASTASES TO CENTRAL NERVOUS SYSTEM
     Dosage: 180 MG, UNK
     Dates: start: 20110407
  3. TEMODAL ^ESSEX^ [Concomitant]
     Indication: NON-SMALL CELL LUNG CANCER
  4. CAMPTO [Concomitant]
     Indication: METASTASES TO CENTRAL NERVOUS SYSTEM
     Dosage: 18 MG, UNK
     Dates: start: 20110407
  5. CAMPTO [Concomitant]
     Indication: NON-SMALL CELL LUNG CANCER

REACTIONS (5)
  - Myocardial infarction [Fatal]
  - Dyspnoea [Fatal]
  - Tachycardia [Fatal]
  - Neutropenia [Fatal]
  - Pyrexia [Fatal]
